FAERS Safety Report 8417590-4 (Version None)
Quarter: 2012Q2

REPORT INFORMATION
  Report Type: 
  Country: None (occurrence: None)
  Receive Date: 20120606
  Receipt Date: 20120121
  Transmission Date: 20120825
  Serious: Yes (Death, Hospitalization, Other)
  Sender: FDA-Public Use
  Company Number: CHPA2012US011226

PATIENT
  Age: 92 Year
  Sex: Male

DRUGS (2)
  1. ANAESTHETICS [Concomitant]
     Indication: KNEE OPERATION
     Dosage: UNK, UNK
  2. MAALOX ADV MAXIMUM STRENGTH ANTACID/ANTIGAS [Suspect]
     Indication: ABDOMINAL DISCOMFORT
     Dosage: 2 TO 4 TSP, PRN
     Route: 048

REACTIONS (8)
  - CARDIAC ARREST [None]
  - INFECTION [None]
  - DYSURIA [None]
  - MYOCARDIAL INFARCTION [None]
  - HEART RATE IRREGULAR [None]
  - BLOOD PRESSURE DECREASED [None]
  - ROAD TRAFFIC ACCIDENT [None]
  - PULMONARY OEDEMA [None]
